FAERS Safety Report 7038209-3 (Version None)
Quarter: 2010Q4

REPORT INFORMATION
  Report Type: 
  Country: None (occurrence: None)
  Receive Date: 20101011
  Receipt Date: 20101007
  Transmission Date: 20110411
  Serious: Yes (Hospitalization)
  Sender: FDA-Public Use
  Company Number: US-BRISTOL-MYERS SQUIBB COMPANY-15323488

PATIENT
  Sex: Female

DRUGS (1)
  1. SPRYCEL [Suspect]
     Dates: start: 20101006

REACTIONS (2)
  - HYPERVENTILATION [None]
  - PALPITATIONS [None]
